FAERS Safety Report 15843658 (Version 1)
Quarter: 2019Q1

REPORT INFORMATION
  Report Type: Spontaneous
  Country: US (occurrence: US)
  Receive Date: 20190118
  Receipt Date: 20190118
  Transmission Date: 20190417
  Serious: No
  Sender: FDA-Public Use
  Company Number: US-SUNOVION-2019SUN000036

PATIENT

DRUGS (1)
  1. LATUDA [Suspect]
     Active Substance: LURASIDONE HYDROCHLORIDE
     Route: 048

REACTIONS (7)
  - Feeling hot [Unknown]
  - Pyrexia [Unknown]
  - Withdrawal syndrome [Unknown]
  - Headache [Unknown]
  - Dizziness [Unknown]
  - Tremor [Unknown]
  - Product dose omission [Unknown]
